FAERS Safety Report 9629501 (Version 1)
Quarter: 2013Q4

REPORT INFORMATION
  Report Type: Spontaneous
  Country: US (occurrence: US)
  Receive Date: 20131017
  Receipt Date: 20131017
  Transmission Date: 20140711
  Serious: No
  Sender: FDA-Public Use
  Company Number: US-009507513-1310USA005498

PATIENT
  Age: 31 Year
  Sex: Female
  Weight: 94.3 kg

DRUGS (3)
  1. NUVARING [Suspect]
     Indication: CONTRACEPTION
     Dosage: UNK
     Route: 067
     Dates: start: 2004, end: 20130926
  2. PROTONIX [Concomitant]
  3. VITAMINS (UNSPECIFIED) [Concomitant]

REACTIONS (1)
  - Unintended pregnancy [Unknown]
